FAERS Safety Report 8790418 (Version 1)
Quarter: 2012Q4

REPORT INFORMATION
  Report Type: Spontaneous
  Country: US (occurrence: None)
  Receive Date: 20120911
  Receipt Date: 20120911
  Transmission Date: 20130627
  Serious: Yes (Hospitalization)
  Sender: FDA-Public Use
  Company Number: None

PATIENT
  Age: 92 Year
  Sex: Female
  Weight: 43 kg

DRUGS (18)
  1. WARFARIN [Suspect]
     Dosage: prior to admission,  6 days/wk + 5 mg 1 /day/wk
     Route: 048
  2. ASCORBIC ACID [Concomitant]
  3. CALCIUM + VITAMIN D [Concomitant]
  4. FUROUEMIDE [Concomitant]
  5. LORATADINE [Concomitant]
  6. MULTIVITAMIN [Concomitant]
  7. KCL [Concomitant]
  8. TRAZODONE [Concomitant]
  9. ZOLPIDEM [Concomitant]
  10. FLUTICASONE/SALMETEROL [Concomitant]
  11. FERROUS SULTATE [Concomitant]
  12. LISINOPRIL [Concomitant]
  13. METOLAZONE [Concomitant]
  14. MOMETASONE NASAL SPRAY [Concomitant]
  15. DIGOXIN [Concomitant]
  16. ALBUTEROL INHALER [Concomitant]
  17. LIDOCAINE [Concomitant]
  18. ACETAMINOPHEN WITH HYDROCODONE [Concomitant]

REACTIONS (7)
  - Mental disorder [None]
  - Subdural haematoma [None]
  - Urinary tract infection [None]
  - Blood sodium decreased [None]
  - Confusional state [None]
  - Restlessness [None]
  - Agitation [None]
